FAERS Safety Report 8041025-7 (Version None)
Quarter: 2012Q1

REPORT INFORMATION
  Report Type: 
  Country: None (occurrence: None)
  Receive Date: 20120109
  Receipt Date: 20111228
  Transmission Date: 20120608
  Serious: Yes (Death, Hospitalization)
  Sender: FDA-Public Use
  Company Number: UTC-012112

PATIENT
  Age: 32 Year
  Sex: Male
  Weight: 107.7 kg

DRUGS (9)
  1. REMODULIN [Suspect]
     Indication: CARDIAC DISORDER
     Dosage: 14.4 UG/KG (0.01 UG/KG,1 IN 1 MIN) ,INTRAVENOUS
     Route: 042
     Dates: start: 20110930
  2. REMODULIN [Suspect]
     Indication: COR PULMONALE CHRONIC
     Dosage: 14.4 UG/KG (0.01 UG/KG,1 IN 1 MIN) ,INTRAVENOUS
     Route: 042
     Dates: start: 20110930
  3. REVATIO [Concomitant]
  4. DIURETICS (DIURETICS) DIURETICS (DIURETICS) [Concomitant]
  5. COREG(CARVEDILOL) COREG(CARVEDILOL) [Concomitant]
  6. POTASSIUM CHLORIDE [Concomitant]
  7. VASOTEC [Concomitant]
  8. ASPIRIN [Concomitant]
  9. COUMADIN (WARFARIN) COUMADIN (WARFARIN) [Concomitant]

REACTIONS (3)
  - CEREBRAL HAEMORRHAGE [None]
  - PYREXIA [None]
  - CEREBROVASCULAR ACCIDENT [None]
